FAERS Safety Report 10698007 (Version 1)
Quarter: 2014Q4

REPORT INFORMATION
  Report Type: Spontaneous
  Country: US (occurrence: None)
  Receive Date: 20141223
  Receipt Date: 20141223
  Transmission Date: 20150529
  Serious: No
  Sender: FDA-Public Use
  Company Number: 1000071657

PATIENT
  Age: 58 Year
  Sex: Female

DRUGS (1)
  1. LINZESS [Suspect]
     Active Substance: LINACLOTIDE
     Indication: INTESTINAL OBSTRUCTION
     Dosage: 145 MCG (145 MCG, 1 IN 1 D), ORAL
     Route: 048
     Dates: start: 201410, end: 201410

REACTIONS (2)
  - Off label use [None]
  - Intentional product misuse [None]

NARRATIVE: CASE EVENT DATE: 201410
